FAERS Safety Report 7458512-2 (Version None)
Quarter: 2011Q2

REPORT INFORMATION
  Report Type: 
  Country: None (occurrence: None)
  Receive Date: 20110503
  Receipt Date: 20110503
  Transmission Date: 20111010
  Serious: Yes (Other)
  Sender: FDA-Public Use
  Company Number: None

PATIENT
  Age: 79 Year
  Sex: Male
  Weight: 62.5964 kg

DRUGS (2)
  1. CYCLOBENZAPRINE [Suspect]
     Indication: BACK PAIN
     Dosage: 1 TABLET FIRST TIME PO
     Route: 048
     Dates: start: 20110429, end: 20110430
  2. CYCLOBENZAPRINE [Suspect]
     Indication: MUSCLE SPASMS
     Dosage: 1 TABLET FIRST TIME PO
     Route: 048
     Dates: start: 20110429, end: 20110430

REACTIONS (2)
  - CONVULSION [None]
  - ABNORMAL DREAMS [None]
